FAERS Safety Report 14867513 (Version 12)
Quarter: 2019Q3

REPORT INFORMATION
  Report Type: Report from Study
  Country: US (occurrence: US)
  Receive Date: 20180508
  Receipt Date: 20190930
  Transmission Date: 20191004
  Serious: Yes (Other)
  Sender: FDA-Public Use
  Company Number: US-TESARO, INC-US-2018TSO01950

PATIENT
  Sex: Female
  Weight: 62.13 kg

DRUGS (13)
  1. LEVOTHYROXINE. [Concomitant]
     Active Substance: LEVOTHYROXINE
  2. NIRAPARIB [Suspect]
     Active Substance: NIRAPARIB
     Dosage: 200 MG, QD, 2 CAPSULES IN THE MORNING WITH A SNACK
  3. AMLODIPINE [Concomitant]
     Active Substance: AMLODIPINE BESYLATE
  4. SERTRALINE [Concomitant]
     Active Substance: SERTRALINE HYDROCHLORIDE
  5. GABAPENTIN. [Concomitant]
     Active Substance: GABAPENTIN
  6. ADVIL (MEFENAMIC ACID) [Concomitant]
     Active Substance: MEFENAMIC ACID
  7. NIRAPARIB [Suspect]
     Active Substance: NIRAPARIB
     Dosage: 100 MG, QD
     Route: 048
  8. XANAX [Concomitant]
     Active Substance: ALPRAZOLAM
  9. NIRAPARIB [Suspect]
     Active Substance: NIRAPARIB
     Dosage: 100 MG, EVERY THREE DAYS
     Dates: start: 20180404
  10. OXYCODONE [Concomitant]
     Active Substance: OXYCODONE
  11. NIRAPARIB [Suspect]
     Active Substance: NIRAPARIB
     Dosage: 200 MG, QD
     Route: 048
  12. NIRAPARIB [Suspect]
     Active Substance: NIRAPARIB
     Dosage: 200 MG, QD
     Route: 048
     Dates: start: 20180528
  13. NIRAPARIB [Suspect]
     Active Substance: NIRAPARIB
     Dosage: 200 MG, DAILY AFTER LUNCH AROUND 12-1PM
     Route: 048

REACTIONS (16)
  - Adverse drug reaction [Unknown]
  - Decreased appetite [Not Recovered/Not Resolved]
  - Intentional product misuse [Unknown]
  - Oral disorder [Unknown]
  - Malaise [Recovered/Resolved]
  - Restless legs syndrome [Not Recovered/Not Resolved]
  - Blood pressure increased [Recovered/Resolved]
  - Palpitations [Not Recovered/Not Resolved]
  - Inappropriate schedule of product administration [Unknown]
  - Neuropathy peripheral [Unknown]
  - Heart rate irregular [Recovered/Resolved]
  - Headache [Recovered/Resolved]
  - Nausea [Not Recovered/Not Resolved]
  - Vomiting [Recovering/Resolving]
  - Deafness [Not Recovered/Not Resolved]
  - Product dose omission [Unknown]

NARRATIVE: CASE EVENT DATE: 2018
